FAERS Safety Report 17661697 (Version 3)
Quarter: 2021Q3

REPORT INFORMATION
  Report Type: Spontaneous
  Country: US (occurrence: US)
  Receive Date: 20200413
  Receipt Date: 20210728
  Transmission Date: 20211014
  Serious: Yes (Death, Hospitalization, Other)
  Sender: FDA-Public Use
  Company Number: US-PERRIGO-20US005218

PATIENT
  Sex: Male

DRUGS (3)
  1. PANTOPRAZOLE [Suspect]
     Active Substance: PANTOPRAZOLE
     Indication: PRODUCT USED FOR UNKNOWN INDICATION
     Dosage: 40 MG, QD
     Route: 048
     Dates: start: 20171101, end: 20180605
  2. PREVACID 24 HR [Suspect]
     Active Substance: LANSOPRAZOLE
     Indication: GASTROOESOPHAGEAL REFLUX DISEASE
     Dosage: 15 MG, BID
     Route: 065
  3. PREVACID 24 HR [Suspect]
     Active Substance: LANSOPRAZOLE
     Indication: GASTROOESOPHAGEAL REFLUX DISEASE

REACTIONS (27)
  - Coronary artery disease [Fatal]
  - End stage renal disease [Unknown]
  - Device dependence [Unknown]
  - Haematuria [Unknown]
  - Renal tubular necrosis [Unknown]
  - Dialysis [Unknown]
  - Nephropathy [Unknown]
  - Haemodialysis [Unknown]
  - Chronic kidney disease [Fatal]
  - Diabetic nephropathy [Unknown]
  - Pollakiuria [Unknown]
  - Cardio-respiratory arrest [Fatal]
  - Renal failure [Unknown]
  - Nephrogenic anaemia [Unknown]
  - Nephrosclerosis [Unknown]
  - Polyuria [Unknown]
  - Nocturia [Unknown]
  - Acute kidney injury [Unknown]
  - Dysuria [Unknown]
  - Glycosuria [Unknown]
  - Hypotension [Fatal]
  - Incontinence [Unknown]
  - Micturition urgency [Unknown]
  - Hypertensive nephropathy [Unknown]
  - Proteinuria [Unknown]
  - Renal impairment [Unknown]
  - Oliguria [Unknown]
